FAERS Safety Report 10169828 (Version 2)
Quarter: 2014Q2

REPORT INFORMATION
  Report Type: Spontaneous
  Country: US (occurrence: US)
  Receive Date: 20140513
  Receipt Date: 20140618
  Transmission Date: 20141212
  Serious: Yes (Other)
  Sender: FDA-Public Use
  Company Number: US-PFIZER INC-2014130610

PATIENT
  Age: 50 Year
  Sex: Female
  Weight: 59.86 kg

DRUGS (5)
  1. LIPITOR [Suspect]
     Indication: LOW DENSITY LIPOPROTEIN INCREASED
     Dosage: 10 MG, DAILY
     Route: 048
     Dates: start: 2008
  2. LIPITOR [Suspect]
     Indication: CARDIOVASCULAR EVENT PROPHYLAXIS
  3. IBUPROFEN [Concomitant]
     Indication: BACK PAIN
     Dosage: 800 MG, AS NEEDED
     Dates: start: 2004
  4. CYMBALTA [Concomitant]
     Indication: DEPRESSION
     Dosage: 40 MG, UNK
     Dates: start: 2010
  5. CLARITIN [Concomitant]
     Indication: ALLERGIC SINUSITIS
     Dosage: 10 MG, UNK
     Dates: start: 2010

REACTIONS (1)
  - Type 2 diabetes mellitus [Not Recovered/Not Resolved]
